FAERS Safety Report 12697650 (Version 1)
Quarter: 2016Q3

REPORT INFORMATION
  Report Type: Spontaneous
  Country: US (occurrence: None)
  Receive Date: 20160829
  Receipt Date: 20160829
  Transmission Date: 20161109
  Serious: Yes (Other)
  Sender: FDA-Public Use
  Company Number: None

PATIENT
  Age: 46 Year
  Sex: Female
  Weight: 64.41 kg

DRUGS (3)
  1. GADOLINIUM [Suspect]
     Active Substance: GADOLINIUM
     Indication: NUCLEAR MAGNETIC RESONANCE IMAGING
     Dates: start: 20160219, end: 20160219
  2. MULTIVITAMINS [Concomitant]
     Active Substance: VITAMINS
  3. LOSARTAN. [Concomitant]
     Active Substance: LOSARTAN

REACTIONS (10)
  - Cognitive disorder [None]
  - Glomerular filtration rate decreased [None]
  - Skin hyperpigmentation [None]
  - Toxicity to various agents [None]
  - Skin disorder [None]
  - Memory impairment [None]
  - Drug level increased [None]
  - Uterine leiomyoma [None]
  - Blood creatinine decreased [None]
  - Hypertension [None]

NARRATIVE: CASE EVENT DATE: 20160219
